FAERS Safety Report 9956152 (Version 1)
Quarter: 2014Q1

REPORT INFORMATION
  Report Type: Report from Study
  Country: US (occurrence: US)
  Receive Date: 20140304
  Receipt Date: 20140304
  Transmission Date: 20141002
  Serious: No
  Sender: FDA-Public Use
  Company Number: US-ABBVIE-13P-163-1087788-00

PATIENT
  Age: 45 Year
  Sex: Female
  Weight: 108.96 kg

DRUGS (4)
  1. HUMIRA [Suspect]
     Indication: PSORIASIS
     Dates: start: 201210, end: 201302
  2. HUMIRA [Suspect]
     Dates: start: 201304
  3. MULTIPLE VITAMINS [Concomitant]
     Indication: VITAMIN SUPPLEMENTATION
  4. TUMS [Concomitant]
     Indication: MINERAL SUPPLEMENTATION

REACTIONS (1)
  - Psoriasis [Recovered/Resolved]
